FAERS Safety Report 7825748-8 (Version None)
Quarter: 2011Q4

REPORT INFORMATION
  Report Type: 
  Country: None (occurrence: None)
  Receive Date: 20111019
  Receipt Date: 20111011
  Transmission Date: 20120403
  Serious: Yes (Other)
  Sender: FDA-Public Use
  Company Number: PHHY2010CA19600

PATIENT
  Sex: Female

DRUGS (1)
  1. ZOLEDRONOC ACID [Suspect]
     Indication: OSTEOPOROSIS
     Dosage: UNK UKN, UNK
     Route: 042
     Dates: start: 20090527

REACTIONS (6)
  - DYSURIA [None]
  - POLLAKIURIA [None]
  - CONSTIPATION [None]
  - CYSTITIS [None]
  - URINARY TRACT INFECTION [None]
  - DRUG INTOLERANCE [None]
